FAERS Safety Report 25764548 (Version 1)
Quarter: 2025Q3

REPORT INFORMATION
  Report Type: Spontaneous
  Country: US (occurrence: US)
  Receive Date: 20250905
  Receipt Date: 20250905
  Transmission Date: 20251020
  Serious: No
  Sender: DOMPE FARMACEUTICI
  Company Number: US-FARMAPROD-202502-0414

PATIENT
  Sex: Male

DRUGS (28)
  1. OXERVATE [Suspect]
     Active Substance: CENEGERMIN-BKBJ
     Indication: Neurotrophic keratopathy
     Route: 047
     Dates: start: 20220630, end: 20220906
  2. OXERVATE [Suspect]
     Active Substance: CENEGERMIN-BKBJ
     Route: 047
     Dates: start: 20250115
  3. CITRACAL + D MAXIMUM [Concomitant]
  4. ARTIFICIAL TEARS [Concomitant]
  5. CLOPIDOGREL [Concomitant]
     Active Substance: CLOPIDOGREL BISULFATE
  6. SUNOSI [Concomitant]
     Active Substance: SOLRIAMFETOL
  7. COLESTIPOL HYDROCHLORIDE [Concomitant]
     Active Substance: COLESTIPOL HYDROCHLORIDE
  8. LUBRICANT EYE [Concomitant]
  9. MESALAMINE [Concomitant]
     Active Substance: MESALAMINE
  10. RETAINE PM [Concomitant]
     Active Substance: MINERAL OIL\PETROLATUM
  11. ZIOPTAN [Concomitant]
     Active Substance: TAFLUPROST
  12. PATADAY ONCE DAILY RELIEF [Concomitant]
     Active Substance: OLOPATADINE HYDROCHLORIDE
  13. TYRVAYA [Concomitant]
     Active Substance: VARENICLINE TARTRATE
  14. CLONAZEPAM [Concomitant]
     Active Substance: CLONAZEPAM
  15. METOCLOPRAMIDE HYDROCHLORIDE [Concomitant]
     Active Substance: METOCLOPRAMIDE HYDROCHLORIDE
  16. HYDROXYZINE HYDROCHLORIDE [Concomitant]
     Active Substance: HYDROXYZINE HYDROCHLORIDE
  17. ATORVASTATIN CALCIUM [Concomitant]
     Active Substance: ATORVASTATIN CALCIUM
  18. ELMIRON [Concomitant]
     Active Substance: PENTOSAN POLYSULFATE SODIUM
  19. METFORMIN HYDROCHLORIDE [Concomitant]
     Active Substance: METFORMIN HYDROCHLORIDE
  20. SOTALOL [Concomitant]
     Active Substance: SOTALOL
  21. ASPIRIN [Concomitant]
     Active Substance: ASPIRIN
  22. ESCITALOPRAM OXALATE [Concomitant]
     Active Substance: ESCITALOPRAM OXALATE
  23. OMEPRAZOLE [Concomitant]
     Active Substance: OMEPRAZOLE
  24. LEVOTHYROXINE [Concomitant]
     Active Substance: LEVOTHYROXINE
  25. VITAMIN B12 [Concomitant]
     Active Substance: CYANOCOBALAMIN
  26. VITAMIN C [Concomitant]
     Active Substance: ASCORBIC ACID
  27. PROBIOTICS NOS [Concomitant]
     Active Substance: PROBIOTICS NOS
  28. FISH OIL [Concomitant]
     Active Substance: FISH OIL

REACTIONS (2)
  - Eye irritation [Unknown]
  - Photophobia [Unknown]
